FAERS Safety Report 11828658 (Version 1)
Quarter: 2015Q4

REPORT INFORMATION
  Report Type: Spontaneous
  Country: US (occurrence: US)
  Receive Date: 20151211
  Receipt Date: 20151211
  Transmission Date: 20160305
  Serious: No
  Sender: FDA-Public Use
  Company Number: US-JUBILANT CADISTA PHARMACEUTICALS-2015JUB00102

PATIENT
  Age: 61 Year
  Sex: Female
  Weight: 61.22 kg

DRUGS (2)
  1. VITAMIN SUPPLEMENT [Concomitant]
     Active Substance: VITAMINS
  2. METHYLPREDNISOLONE. [Suspect]
     Active Substance: METHYLPREDNISOLONE
     Indication: SEASONAL ALLERGY
     Dosage: 24 MG, ONCE
     Route: 048
     Dates: start: 20150409, end: 20150409

REACTIONS (2)
  - Eye swelling [Recovered/Resolved]
  - Hypersensitivity [Not Recovered/Not Resolved]

NARRATIVE: CASE EVENT DATE: 20150409
